FAERS Safety Report 4909909-3 (Version None)
Quarter: 2006Q1

REPORT INFORMATION
  Report Type: 
  Country: None (occurrence: None)
  Receive Date: 20060209
  Receipt Date: 20060202
  Transmission Date: 20060701
  Serious: Yes (Hospitalization)
  Sender: FDA-Public Use
  Company Number: 221748

PATIENT
  Age: 65 Year
  Sex: Female

DRUGS (2)
  1. AVASTIN (BEVACIZUMAB) PWDR + SOLVENT, INFUSION SOLN, 100MG [Suspect]
     Indication: OVARIAN CANCER
     Dosage: QOW, INTRAVENOUS
     Route: 042
     Dates: start: 20051215
  2. ERLOTINIB (ERLOTINIB) TABLET, 150MG [Suspect]
     Indication: OVARIAN CANCER
     Dosage: 150 MG, QD, ORAL
     Route: 048
     Dates: start: 20051215

REACTIONS (5)
  - ABDOMINAL DISTENSION [None]
  - DIARRHOEA [None]
  - PLEURAL EFFUSION [None]
  - PNEUMONIA [None]
  - PULMONARY EMBOLISM [None]
